FAERS Safety Report 7038405-5 (Version None)
Quarter: 2010Q4

REPORT INFORMATION
  Report Type: 
  Country: None (occurrence: None)
  Receive Date: 20101011
  Receipt Date: 20100426
  Transmission Date: 20110411
  Serious: Yes (Hospitalization, Other)
  Sender: FDA-Public Use
  Company Number: US-PFIZER INC-2010053297

PATIENT
  Sex: Female
  Weight: 90.7 kg

DRUGS (7)
  1. NEURONTIN [Suspect]
     Indication: NEURALGIA
     Dosage: 100 MG, 3X/DAY
     Route: 048
     Dates: start: 19980101, end: 20050101
  2. NEURONTIN [Suspect]
     Dosage: 100 MG, 3X/DAY
     Route: 048
     Dates: start: 20090101, end: 20090101
  3. NEURONTIN [Suspect]
     Dosage: 800 MG, 2X/DAY
     Route: 048
     Dates: start: 20090101
  4. LYRICA [Suspect]
     Indication: FIBROMYALGIA
     Dosage: 100 MG, 4X/DAY
     Route: 048
     Dates: start: 20050101, end: 20090101
  5. VITAMIN D [Concomitant]
     Indication: OSTEOARTHRITIS
     Dosage: UNK
  6. LEVOTHYROXINE [Concomitant]
     Indication: HYPOTHYROIDISM
     Dosage: 0.1 MG, UNK
  7. PROTONIX [Concomitant]
     Indication: HIATUS HERNIA
     Dosage: 40 MG, 2X/DAY
     Route: 048

REACTIONS (4)
  - BODY HEIGHT DECREASED [None]
  - CHEST PAIN [None]
  - DRUG INEFFECTIVE [None]
  - PAIN [None]
